FAERS Safety Report 16676378 (Version 3)
Quarter: 2019Q4

REPORT INFORMATION
  Report Type: Spontaneous
  Country: FR (occurrence: FR)
  Receive Date: 20190807
  Receipt Date: 20191207
  Transmission Date: 20200122
  Serious: Yes (Other)
  Sender: FDA-Public Use
  Company Number: FR-ROCHE-2369924

PATIENT
  Sex: Male
  Weight: 62 kg

DRUGS (3)
  1. RIBAVIRIN. [Suspect]
     Active Substance: RIBAVIRIN
     Indication: HEPATITIS C
     Dosage: 24/MAR/2015, MOST RECENT DOSE OF RIBAVIRIN?2-3UNITS
     Route: 048
     Dates: start: 20141201
  2. DACLATASVIR DIHYDROCHLORIDE [Suspect]
     Active Substance: DACLATASVIR DIHYDROCHLORIDE
     Indication: HEPATITIS C
     Dosage: 23/MAR/2015, MOST RECENT DOSE
     Route: 048
     Dates: start: 20141201
  3. SOFOSBUVIR [Suspect]
     Active Substance: SOFOSBUVIR
     Indication: HEPATITIS C
     Dosage: 23/MAR/2015, MOST RECENT DOSE
     Route: 048
     Dates: start: 20141201

REACTIONS (1)
  - Treatment failure [Not Recovered/Not Resolved]
